FAERS Safety Report 11907410 (Version 3)
Quarter: 2016Q1

REPORT INFORMATION
  Report Type: Spontaneous
  Country: US (occurrence: US)
  Receive Date: 20160111
  Receipt Date: 20160212
  Transmission Date: 20160526
  Serious: No
  Sender: FDA-Public Use
  Company Number: US-BAYER-2016-004669

PATIENT
  Age: 64 Year
  Sex: Female

DRUGS (3)
  1. OXYBUTYNIN [Concomitant]
     Active Substance: OXYBUTYNIN
     Dosage: UNK
  2. BETASERON [Suspect]
     Active Substance: INTERFERON BETA-1B
     Indication: MULTIPLE SCLEROSIS
     Dosage: 1 ML, QOD
     Route: 058
     Dates: start: 20150128, end: 20160104
  3. GABAPENTIN. [Concomitant]
     Active Substance: GABAPENTIN
     Dosage: UNK

REACTIONS (2)
  - Hepatic enzyme increased [None]
  - Injection site rash [None]

NARRATIVE: CASE EVENT DATE: 20160106
